FAERS Safety Report 5178961-5 (Version None)
Quarter: 2006Q4

REPORT INFORMATION
  Report Type: 
  Country: None (occurrence: None)
  Receive Date: 20061219
  Receipt Date: 20060718
  Transmission Date: 20070319
  Serious: Yes (Death, Hospitalization, Other)
  Sender: FDA-Public Use
  Company Number: US-BAYER-200614653BWH

PATIENT
  Age: 71 Year
  Sex: Male

DRUGS (6)
  1. NEXAVAR [Suspect]
     Indication: MALIGNANT MELANOMA
     Dosage: TOTAL DAILY DOSE: 800 MG  UNIT DOSE: 200 MG
     Route: 048
     Dates: start: 20051101, end: 20060411
  2. NEXAVAR [Suspect]
     Dosage: TOTAL DAILY DOSE: 800 MG  UNIT DOSE: 200 MG
     Route: 048
     Dates: start: 20060421, end: 20060428
  3. NEXAVAR [Suspect]
     Dosage: TOTAL DAILY DOSE: 800 MG  UNIT DOSE: 200 MG
     Route: 048
     Dates: start: 20060612, end: 20060809
  4. METHADONE HCL [Concomitant]
  5. VICODIN [Concomitant]
  6. VALIUM [Concomitant]

REACTIONS (12)
  - AMNESIA [None]
  - COLON CANCER [None]
  - CONSTIPATION [None]
  - FATIGUE [None]
  - HEPATIC LESION [None]
  - IMPAIRED HEALING [None]
  - LYMPHADENOPATHY [None]
  - METASTASES TO LIVER [None]
  - PULMONARY MASS [None]
  - SEPSIS [None]
  - SLEEP DISORDER [None]
  - SMALL INTESTINAL OBSTRUCTION [None]
